FAERS Safety Report 5390162-4 (Version None)
Quarter: 2007Q3

REPORT INFORMATION
  Report Type: 
  Country: None (occurrence: None)
  Receive Date: 20070716
  Receipt Date: 20070716
  Transmission Date: 20080115
  Serious: Yes (Life-Threatening)
  Sender: FDA-Public Use
  Company Number: None

PATIENT
  Sex: Female
  Weight: 77.1115 kg

DRUGS (1)
  1. PAROXETINE [Suspect]
     Indication: DEPRESSION
     Dosage: 12.5MG 1X DAILY PO
     Route: 048
     Dates: start: 20000522, end: 20070714

REACTIONS (12)
  - ALCOHOLISM [None]
  - ANGER [None]
  - BLOOD CHOLESTEROL INCREASED [None]
  - BLOOD PRESSURE INCREASED [None]
  - CONTUSION [None]
  - DISSOCIATION [None]
  - DRUG WITHDRAWAL SYNDROME [None]
  - MYALGIA [None]
  - SUICIDAL IDEATION [None]
  - THINKING ABNORMAL [None]
  - VOMITING [None]
  - WEIGHT INCREASED [None]
